FAERS Safety Report 7624037-4 (Version None)
Quarter: 2011Q3

REPORT INFORMATION
  Report Type: 
  Country: None (occurrence: None)
  Receive Date: 20110712
  Receipt Date: 20110627
  Transmission Date: 20111222
  Serious: Yes (Death)
  Sender: FDA-Public Use
  Company Number: OPER20110155

PATIENT
  Age: 25 Year
  Sex: Male
  Weight: 79.3795 kg

DRUGS (2)
  1. ALPRAZOLAM [Suspect]
     Indication: DRUG ABUSE
     Dosage: DRUG ABUSE[10013654] [V.13.0]
  2. OPANA ER [Suspect]
     Indication: DRUG ABUSE

REACTIONS (8)
  - PLEURAL EFFUSION [None]
  - UNRESPONSIVE TO STIMULI [None]
  - HEPATIC STEATOSIS [None]
  - EXCORIATION [None]
  - CONTUSION [None]
  - DRUG ABUSE [None]
  - POISONING [None]
  - DRUG SCREEN POSITIVE [None]
